FAERS Safety Report 18410177 (Version 1)
Quarter: 2020Q4

REPORT INFORMATION
  Report Type: Spontaneous
  Country: BE (occurrence: BE)
  Receive Date: 20201021
  Receipt Date: 20201021
  Transmission Date: 20210114
  Serious: Yes (Hospitalization, Other)
  Sender: FDA-Public Use
  Company Number: BE-SA-2020SA289645

PATIENT

DRUGS (4)
  1. ARAVA [Suspect]
     Active Substance: LEFLUNOMIDE
     Dosage: 1 DF, QD
     Route: 065
     Dates: end: 20200621
  2. ZYPREXA [Concomitant]
     Active Substance: OLANZAPINE
     Dosage: 1 DF, QD
     Route: 065
  3. L-THYROXINE [LEVOTHYROXINE] [Concomitant]
     Active Substance: LEVOTHYROXINE
     Dosage: 1 DF, QD
  4. LUTENYL [Concomitant]
     Active Substance: NOMEGESTROL ACETATE
     Dosage: 1 DF, QD
     Route: 065

REACTIONS (7)
  - Corneal erosion [Recovered/Resolved with Sequelae]
  - Nasal injury [Recovered/Resolved with Sequelae]
  - Blindness [Recovered/Resolved with Sequelae]
  - Retinitis [Recovered/Resolved with Sequelae]
  - Mouth injury [Recovered/Resolved with Sequelae]
  - Eye injury [Recovered/Resolved with Sequelae]
  - Rash [Recovered/Resolved with Sequelae]

NARRATIVE: CASE EVENT DATE: 20200621
